APPROVED DRUG PRODUCT: LITHIUM CARBONATE
Active Ingredient: LITHIUM CARBONATE
Strength: 300MG
Dosage Form/Route: TABLET, EXTENDED RELEASE;ORAL
Application: A076382 | Product #001
Applicant: ABLE LABORATORIES INC
Approved: Apr 21, 2003 | RLD: No | RS: No | Type: DISCN